FAERS Safety Report 10110077 (Version 1)
Quarter: 2014Q2

REPORT INFORMATION
  Report Type: Spontaneous
  Country: US (occurrence: US)
  Receive Date: 20140425
  Receipt Date: 20140425
  Transmission Date: 20141212
  Serious: No
  Sender: FDA-Public Use
  Company Number: US-BAYER-2014-060644

PATIENT
  Age: 84 Year
  Sex: Female
  Weight: 68 kg

DRUGS (3)
  1. ALEVE LIQUID GELS [Suspect]
     Indication: ANALGESIC THERAPY
     Dosage: DF OTHER
     Route: 048
     Dates: start: 20140405, end: 20140406
  2. PHILLIP^S COLON HEALTH [Concomitant]
  3. ANACIN [Concomitant]

REACTIONS (1)
  - Facial pain [Recovered/Resolved]
